FAERS Safety Report 5585365-X (Version None)
Quarter: 2008Q1

REPORT INFORMATION
  Report Type: 
  Country: None (occurrence: None)
  Receive Date: 20080109
  Receipt Date: 20080103
  Transmission Date: 20080703
  Serious: Yes (Other)
  Sender: FDA-Public Use
  Company Number: US-JNJFOC-20080100939

PATIENT
  Age: 6 Decade
  Sex: Male

DRUGS (3)
  1. DOXIL [Suspect]
     Indication: MULTIPLE MYELOMA
     Dosage: A ^FEW CYCLES^
     Route: 042
  2. VELCADE [Suspect]
     Indication: MULTIPLE MYELOMA
     Dosage: A ^FEW CYCLES^
     Route: 065
  3. DEXAMETHASONE TAB [Suspect]
     Indication: MULTIPLE MYELOMA
     Dosage: A ^FEW CYCLES^
     Route: 065

REACTIONS (1)
  - CONVULSION [None]
